FAERS Safety Report 11989801 (Version 1)
Quarter: 2016Q1

REPORT INFORMATION
  Report Type: Spontaneous
  Country: US (occurrence: US)
  Receive Date: 20160202
  Receipt Date: 20160202
  Transmission Date: 20160526
  Serious: Yes (Other)
  Sender: FDA-Public Use
  Company Number: US-ROCHE-1659143

PATIENT
  Age: 14 Year
  Sex: Female

DRUGS (1)
  1. NUTROPIN AQ [Suspect]
     Active Substance: SOMATROPIN
     Indication: DWARFISM
     Dosage: EVERY OTHER DAY
     Route: 058
     Dates: start: 20151007

REACTIONS (1)
  - Epiphysiolysis [Unknown]

NARRATIVE: CASE EVENT DATE: 20151105
